FAERS Safety Report 4381644-2 (Version None)
Quarter: 2004Q2

REPORT INFORMATION
  Report Type: 
  Country: None (occurrence: None)
  Receive Date: 20040603
  Receipt Date: 20030826
  Transmission Date: 20050107
  Serious: Yes (Other)
  Sender: FDA-Public Use
  Company Number: 200317710US

PATIENT
  Sex: Female

DRUGS (5)
  1. LOVENOX [Suspect]
     Indication: ATRIAL FIBRILLATION
     Dosage: 70 MG BID SC
     Route: 058
  2. LOVENOX [Suspect]
     Indication: KNEE OPERATION
     Dosage: 70 MG BID SC
     Route: 058
  3. LOVENOX [Suspect]
     Indication: ATRIAL FIBRILLATION
     Dosage: 70 MG BID SC
     Route: 058
  4. LOVENOX [Suspect]
     Indication: KNEE OPERATION
     Dosage: 70 MG BID SC
     Route: 058
  5. WARFARIN SODIUM [Concomitant]

REACTIONS (3)
  - COMPARTMENT SYNDROME [None]
  - FACIAL PALSY [None]
  - HAEMORRHAGE [None]
